FAERS Safety Report 6667475-9 (Version None)
Quarter: 2010Q2

REPORT INFORMATION
  Report Type: 
  Country: None (occurrence: None)
  Receive Date: 20100405
  Receipt Date: 20100331
  Transmission Date: 20101027
  Serious: Yes (Death, Other)
  Sender: FDA-Public Use
  Company Number: GB-CEPHALON-2010001873

PATIENT
  Age: 55 Year
  Sex: Female

DRUGS (3)
  1. ACTIQ [Suspect]
     Route: 002
  2. EMEND [Suspect]
     Indication: NAUSEA
     Route: 048
  3. EMEND [Suspect]
     Indication: VOMITING
     Route: 048

REACTIONS (2)
  - DEATH [None]
  - DRUG LEVEL INCREASED [None]
